FAERS Safety Report 7982711-4 (Version None)
Quarter: 2011Q4

REPORT INFORMATION
  Report Type: 
  Country: None (occurrence: None)
  Receive Date: 20111215
  Receipt Date: 20111202
  Transmission Date: 20120403
  Serious: Yes (Hospitalization)
  Sender: FDA-Public Use
  Company Number: AU-BRISTOL-MYERS SQUIBB COMPANY-14668164

PATIENT
  Age: 51 Year
  Sex: Female
  Weight: 93 kg

DRUGS (7)
  1. DEXAMETHASONE [Concomitant]
     Route: 048
     Dates: start: 20090610, end: 20090729
  2. ACETAMINOPHEN [Concomitant]
     Indication: PAIN
     Dates: start: 20090529
  3. NEUROFEN PLUS [Concomitant]
     Indication: PAIN
     Dates: start: 20090530
  4. CETUXIMAB [Suspect]
     Indication: COLORECTAL CANCER METASTATIC
     Dosage: 22APR-22APR09 (800MG,IV,WEEKLY);500MGIV WEEKLY(29APR-10JUN09)
     Route: 042
     Dates: start: 20090615, end: 20090729
  5. PHENERGAN [Concomitant]
     Route: 042
     Dates: start: 20090610, end: 20090729
  6. STEMETIL [Concomitant]
     Indication: NAUSEA
     Dates: start: 20090530
  7. PLACEBO [Suspect]
     Indication: COLORECTAL CANCER METASTATIC
     Dosage: 22APR-15JUN09.
     Route: 048
     Dates: start: 20090422, end: 20090731

REACTIONS (3)
  - JAUNDICE CHOLESTATIC [None]
  - BACK PAIN [None]
  - FATIGUE [None]
